FAERS Safety Report 25775650 (Version 1)
Quarter: 2025Q3

REPORT INFORMATION
  Report Type: Spontaneous
  Country: CO (occurrence: CO)
  Receive Date: 20250909
  Receipt Date: 20250909
  Transmission Date: 20251021
  Serious: Yes (Other)
  Sender: BIOMARIN
  Company Number: CO-BIOMARIN PHARMACEUTICAL INC.-CO-2025-168135

PATIENT
  Age: 16 Year
  Sex: Female
  Weight: 18.3 kg

DRUGS (4)
  1. NAGLAZYME [Suspect]
     Active Substance: GALSULFASE
     Indication: Mucopolysaccharidosis VI
     Dosage: 20 MILLIGRAM, QW
     Dates: start: 20170322
  2. HYDROCHLOROTHIAZIDE [Concomitant]
     Active Substance: HYDROCHLOROTHIAZIDE
     Indication: Product used for unknown indication
     Dosage: UNK, BID
  3. CAPTOPRIL [Concomitant]
     Active Substance: CAPTOPRIL
     Indication: Product used for unknown indication
     Dosage: UNK UNK, BID
  4. ASPIRIN [Concomitant]
     Active Substance: ASPIRIN
     Indication: Product used for unknown indication
     Dosage: UNK, QD

REACTIONS (2)
  - Syncope [Not Recovered/Not Resolved]
  - Dizziness [Not Recovered/Not Resolved]

NARRATIVE: CASE EVENT DATE: 20250814
